FAERS Safety Report 5373428-3 (Version None)
Quarter: 2007Q2

REPORT INFORMATION
  Report Type: 
  Country: None (occurrence: None)
  Receive Date: 20070626
  Receipt Date: 20070626
  Transmission Date: 20071010
  Serious: Yes (Hospitalization, Disabling)
  Sender: FDA-Public Use
  Company Number: None

PATIENT
  Sex: Female
  Weight: 36.2878 kg

DRUGS (3)
  1. DEPAKOTE ER [Suspect]
     Indication: BIPOLAR DISORDER
     Dosage: MORNING AND EVENING 2 PO
     Route: 048
     Dates: start: 20061201, end: 20061201
  2. RISPERDAL [Suspect]
     Indication: BIPOLAR DISORDER
     Dosage: EVENING PO
     Route: 048
     Dates: start: 20040405, end: 20040405
  3. ABILIFY [Concomitant]

REACTIONS (2)
  - ABDOMINAL DISTENSION [None]
  - DIABETES MELLITUS [None]
